FAERS Safety Report 8763239 (Version 1)
Quarter: 2012Q4

REPORT INFORMATION
  Report Type: 
  Country: MX (occurrence: MX)
  Receive Date: 20120831
  Receipt Date: 20120831
  Transmission Date: 20130627
  Serious: Yes (Death, Hospitalization)
  Sender: FDA-Public Use
  Company Number: MX-SANOFI-AVENTIS-2012SA061056

PATIENT
  Age: 75 Year
  Sex: Male

DRUGS (2)
  1. LANTUS [Suspect]
     Indication: TYPE 2 DIABETES MELLITUS
     Dosage: Dose-15 IU in the morning and 25 IU at night
     Route: 058
     Dates: start: 2009, end: 20120707
  2. GLIBENCLAMIDE [Concomitant]
     Indication: TYPE 2 DIABETES MELLITUS
     Route: 048
     Dates: start: 1997, end: 20120707

REACTIONS (5)
  - Pancreatic carcinoma [Fatal]
  - Disease progression [Fatal]
  - Cholelithiasis [Recovered/Resolved]
  - Hyperglycaemia [Unknown]
  - Hypoglycaemia [Unknown]
